FAERS Safety Report 25780680 (Version 1)
Quarter: 2025Q3

REPORT INFORMATION
  Report Type: Spontaneous
  Country: US (occurrence: US)
  Receive Date: 20250909
  Receipt Date: 20250909
  Transmission Date: 20251020
  Serious: Yes (Other)
  Sender: GRIFOLS
  Company Number: US-IGSA-BIG0037821

PATIENT
  Sex: Female
  Weight: 59.4 kg

DRUGS (1)
  1. PROLASTIN-C LIQUID [Suspect]
     Active Substance: .ALPHA.1-PROTEINASE INHIBITOR HUMAN
     Indication: Alpha-1 antitrypsin deficiency
     Dosage: 3904 MILLIGRAM, Q.WK.
     Route: 042

REACTIONS (3)
  - Loss of consciousness [Unknown]
  - Contusion [Unknown]
  - Arthralgia [Unknown]
